FAERS Safety Report 21474345 (Version 2)
Quarter: 2023Q2

REPORT INFORMATION
  Report Type: Spontaneous
  Country: US (occurrence: US)
  Receive Date: 20221018
  Receipt Date: 20230607
  Transmission Date: 20230722
  Serious: No
  Sender: FDA-Public Use
  Company Number: US-MYLANLABS-2022M1111792

PATIENT
  Age: 18 Year
  Sex: Female
  Weight: 61.6 kg

DRUGS (1)
  1. XULANE [Suspect]
     Active Substance: ETHINYL ESTRADIOL\NORELGESTROMIN
     Indication: Contraception
     Dosage: 150/35 MICROGRAM PER DAY; APPLY 1 PATCH EACH WEEK FOR 3 WEEKS, THEN REMOVE FOR 1 WEEK
     Route: 062

REACTIONS (2)
  - Application site irritation [Not Recovered/Not Resolved]
  - Product adhesion issue [Unknown]

NARRATIVE: CASE EVENT DATE: 20220923
